FAERS Safety Report 8808207 (Version 3)
Quarter: 2012Q4

REPORT INFORMATION
  Report Type: 
  Country: US (occurrence: US)
  Receive Date: 20120926
  Receipt Date: 20121116
  Transmission Date: 20130627
  Serious: Yes (Hospitalization)
  Sender: FDA-Public Use
  Company Number: US-BIOGENIDEC-2012BI039885

PATIENT
  Age: 56 Year
  Sex: Female

DRUGS (4)
  1. TYSABRI [Suspect]
     Indication: MULTIPLE SCLEROSIS
     Route: 042
     Dates: start: 20080401, end: 20080819
  2. TYSABRI [Suspect]
     Indication: MULTIPLE SCLEROSIS
     Route: 042
     Dates: start: 20120118
  3. ANTI DEPRESSANT [Concomitant]
     Indication: DEPRESSION
  4. ANTI ANXIETY MEDICATION [Concomitant]
     Indication: ANXIETY

REACTIONS (11)
  - Anaemia [Not Recovered/Not Resolved]
  - Mucosal excoriation [Not Recovered/Not Resolved]
  - Ulcer [Not Recovered/Not Resolved]
  - Infection [Not Recovered/Not Resolved]
  - Blood disorder [Unknown]
  - Dermatitis allergic [Unknown]
  - Upper gastrointestinal haemorrhage [Unknown]
  - Dyspnoea [Recovered/Resolved]
  - Chest discomfort [Recovered/Resolved]
  - Blood glucose increased [Recovered/Resolved]
  - Petechiae [Unknown]
